FAERS Safety Report 5026287-2 (Version None)
Quarter: 2006Q2

REPORT INFORMATION
  Report Type: 
  Country: None (occurrence: None)
  Receive Date: 20060426
  Receipt Date: 20060120
  Transmission Date: 20061013
  Serious: Yes (Other)
  Sender: FDA-Public Use
  Company Number: 2006011793

PATIENT
  Age: 48 Year
  Sex: Female
  Weight: 47.6277 kg

DRUGS (4)
  1. LYRICA [Suspect]
     Indication: BACK PAIN
     Dosage: (2 IN 1 D),ORAL
     Route: 048
     Dates: start: 20051215
  2. LYRICA [Suspect]
     Indication: NECK PAIN
     Dosage: (2 IN 1 D),ORAL
     Route: 048
     Dates: start: 20051215
  3. BACLOFEN [Concomitant]
  4. ATIVAN [Concomitant]

REACTIONS (5)
  - ANXIETY [None]
  - DISTURBANCE IN ATTENTION [None]
  - FEELING ABNORMAL [None]
  - PAIN [None]
  - TREMOR [None]
